FAERS Safety Report 12645149 (Version 1)
Quarter: 2016Q3

REPORT INFORMATION
  Report Type: Report from Study
  Country: IE (occurrence: IE)
  Receive Date: 20160811
  Receipt Date: 20160811
  Transmission Date: 20161109
  Serious: Yes (Other)
  Sender: FDA-Public Use
  Company Number: IE-AMGEN-IRLSL2016102940

PATIENT
  Age: 56 Year
  Sex: Female

DRUGS (11)
  1. MOTILIUM [Concomitant]
     Active Substance: DOMPERIDONE
     Dosage: 10 MG, TID
     Route: 050
  2. LACTULOSE. [Concomitant]
     Active Substance: LACTULOSE
     Dosage: 10 MG, QD
     Route: 050
  3. SOLPADEINE [Concomitant]
     Dosage: 2 MG, AS NECESSARY
     Route: 050
  4. BECOTIDE [Concomitant]
     Active Substance: BECLOMETHASONE DIPROPIONATE
     Dosage: 2 MG, AS NECESSARY
     Route: 050
  5. OMEPRAZOL [Concomitant]
     Active Substance: OMEPRAZOLE
     Dosage: 40 MG, QD
     Route: 050
  6. STILNOCT [Concomitant]
     Active Substance: ZOLPIDEM TARTRATE
     Dosage: 5 MG, NIGHT UNK
     Route: 050
  7. DEXAMETHASONE. [Concomitant]
     Active Substance: DEXAMETHASONE
     Dosage: 8 MG, QD
     Route: 050
  8. NEULASTA [Suspect]
     Active Substance: PEGFILGRASTIM
     Indication: ENDOMETRIAL CANCER
     Dosage: 6 MG, (POST CHEMOTHERAPY 3 WEEKLY CYCLE)
     Route: 058
  9. SALBUTAMOL [Concomitant]
     Active Substance: ALBUTEROL
     Dosage: 2 UNIT, AS NECESSARY
     Route: 050
  10. VALOID [Concomitant]
     Active Substance: CYCLIZINE HYDROCHLORIDE
     Dosage: 50 MG, TID
     Route: 050
  11. SENNA [Concomitant]
     Active Substance: SENNA LEAF\SENNOSIDES\SENNOSIDES A AND B
     Dosage: 2 MG, NIGHT UNK
     Route: 050

REACTIONS (3)
  - Back pain [Recovered/Resolved]
  - Bone pain [Recovered/Resolved]
  - Wound infection [Recovered/Resolved]

NARRATIVE: CASE EVENT DATE: 20160715
